FAERS Safety Report 4924266-4 (Version None)
Quarter: 2006Q1

REPORT INFORMATION
  Report Type: 
  Country: None (occurrence: None)
  Receive Date: 20060221
  Receipt Date: 20060207
  Transmission Date: 20060701
  Serious: Yes (Disabling, Other)
  Sender: FDA-Public Use
  Company Number: 2006020038

PATIENT
  Age: 48 Year
  Sex: Male
  Weight: 135.1719 kg

DRUGS (27)
  1. LIPITOR [Suspect]
     Indication: BLOOD CHOLESTEROL INCREASED
     Dosage: 40 MG (40 MG, 1 IN 1 D),
  2. NEURONTIN [Suspect]
     Indication: NEUROPATHY
     Dosage: 12000 MG (2400 MG, 5 IN 1 D)
  3. GABAPENTIN [Suspect]
     Indication: NEUROPATHY
     Dosage: 12000 MG (2400 MG, 5 IN 1 D)
  4. INSULIN [Suspect]
     Indication: ILL-DEFINED DISORDER
  5. ALL OTHER THERAPEUTIC PRODUCTS (ALL OTHER THERAPEUTIC PRODUCTS) [Suspect]
     Indication: ILL-DEFINED DISORDER
  6. NITROSTAT [Concomitant]
  7. RELAFEN [Concomitant]
  8. MONTELUKAST SODIUM (MONTELUKAST SODIUM) [Concomitant]
  9. TOPROL-XL [Concomitant]
  10. METOLAZONE [Concomitant]
  11. ACETYLSALICYLIC ACID ENTERIC COATED (ACETYLSALICYLIC ACID) [Concomitant]
  12. FOSAMAX [Concomitant]
  13. ZESTORETIC [Concomitant]
  14. CREON [Concomitant]
  15. HUMALOG [Concomitant]
  16. LANTUS [Concomitant]
  17. NEXIUM [Concomitant]
  18. VICODIN [Concomitant]
  19. ALBUTEROL [Concomitant]
  20. SEREVENT [Concomitant]
  21. PULMICORT [Concomitant]
  22. FLUOCINOLONE ACETONIDE (FLUOCINOLONE ACETONIDE) [Concomitant]
  23. FOLGARD (CYANOCOBALAMIN, FOLIC ACID, PYRIDOXINE HYDROCHLORIDE) [Concomitant]
  24. FLEXERIL [Concomitant]
  25. FUROSEMIDE [Concomitant]
  26. LAC-HYDRIN (AMMONIUM LACTATE) [Concomitant]
  27. PREDNISONE TAB [Concomitant]

REACTIONS (8)
  - BLOOD CHOLESTEROL INCREASED [None]
  - CEREBROVASCULAR ACCIDENT [None]
  - FLUID RETENTION [None]
  - GLYCOSYLATED HAEMOGLOBIN INCREASED [None]
  - MYOCARDIAL INFARCTION [None]
  - SPINAL OPERATION [None]
  - THERAPY REGIMEN CHANGED [None]
  - TREATMENT NONCOMPLIANCE [None]
